FAERS Safety Report 17820950 (Version 1)
Quarter: 2020Q2

REPORT INFORMATION
  Report Type: Spontaneous
  Country: GB (occurrence: GB)
  Receive Date: 20200525
  Receipt Date: 20200525
  Transmission Date: 20200714
  Serious: Yes (Hospitalization)
  Sender: FDA-Public Use
  Company Number: GB-ACCORD-183200

PATIENT
  Age: 2 Year
  Sex: Female
  Weight: 10.7 kg

DRUGS (11)
  1. DARBEPOETIN ALFA [Concomitant]
     Active Substance: DARBEPOETIN ALFA
  2. VENOFER [Concomitant]
     Active Substance: IRON SUCROSE
  3. GLYCERINE [Concomitant]
     Active Substance: GLYCERIN
  4. TINZAPARIN [Concomitant]
     Active Substance: TINZAPARIN
  5. CINACALCET. [Concomitant]
     Active Substance: CINACALCET
  6. LEVETIRACETAM. [Suspect]
     Active Substance: LEVETIRACETAM
     Indication: CEREBRAL INFARCTION
     Route: 048
     Dates: start: 20190301, end: 20200427
  7. MOVICOL [Concomitant]
     Active Substance: POLYETHYLENE GLYCOL 3350\POTASSIUM CHLORIDE\SODIUM BICARBONATE\SODIUM CHLORIDE
  8. CHLORPHENAMINE [Concomitant]
     Active Substance: CHLORPHENIRAMINE MALEATE
  9. DERMOL [Concomitant]
     Active Substance: BENZALKONIUM CHLORIDE\CHLORHEXIDINE HYDROCHLORIDE\ISOPROPYL MYRISTATE\PARAFFIN
  10. BETNOVATE [Concomitant]
     Active Substance: BETAMETHASONE
  11. DOMPERIDONE [Concomitant]
     Active Substance: DOMPERIDONE

REACTIONS (2)
  - Incorrect dose administered [Unknown]
  - Epilepsy [Recovered/Resolved]

NARRATIVE: CASE EVENT DATE: 20200427
